FAERS Safety Report 7183191-1 (Version None)
Quarter: 2010Q4

REPORT INFORMATION
  Report Type: 
  Country: None (occurrence: None)
  Receive Date: 20101208
  Receipt Date: 20101124
  Transmission Date: 20110411
  Serious: Yes (Life-Threatening, Other)
  Sender: FDA-Public Use
  Company Number: 1000017566

PATIENT
  Age: 36 Year
  Sex: Female
  Weight: 80 kg

DRUGS (2)
  1. CITALOPRAM (CITALOPRAM HYDROBROMIDE) [Suspect]
     Indication: DEPRESSION
     Dosage: 40 MG (40, 1 IN 1 D), ORAL
     Route: 048
     Dates: start: 20100907, end: 20101104
  2. ZAPAIN (CODEINE PHOSPHATE, PARACETAMOL) (CODEINE PHOSPHATE, PARACETAMO [Concomitant]

REACTIONS (2)
  - OBSESSIVE THOUGHTS [None]
  - SUICIDAL IDEATION [None]
